FAERS Safety Report 25552450 (Version 1)
Quarter: 2025Q3

REPORT INFORMATION
  Report Type: Spontaneous
  Country: US (occurrence: US)
  Receive Date: 20250715
  Receipt Date: 20250715
  Transmission Date: 20251021
  Serious: Yes (Other)
  Sender: GLAXOSMITHKLINE
  Company Number: US-GLAXOSMITHKLINE INC-US2025085060

PATIENT
  Sex: Female

DRUGS (1)
  1. BENLYSTA [Suspect]
     Active Substance: BELIMUMAB
     Indication: Lupus myositis

REACTIONS (4)
  - Lupus myositis [Unknown]
  - Condition aggravated [Unknown]
  - Adverse drug reaction [Unknown]
  - Product use in unapproved indication [Unknown]
